FAERS Safety Report 18491884 (Version 2)
Quarter: 2020Q4

REPORT INFORMATION
  Report Type: Spontaneous
  Country: IT (occurrence: IT)
  Receive Date: 20201111
  Receipt Date: 20201118
  Transmission Date: 20210114
  Serious: Yes (Life-Threatening)
  Sender: FDA-Public Use
  Company Number: IT-AMERICAN REGENT INC-2020002388

PATIENT
  Age: 39 Year
  Sex: Female
  Weight: 45 kg

DRUGS (1)
  1. FERINJECT [Suspect]
     Active Substance: FERRIC CARBOXYMALTOSE
     Indication: IRON DEFICIENCY ANAEMIA
     Dosage: 500 MILLIGRAM
     Dates: start: 20201029, end: 20201029

REACTIONS (10)
  - Dyspnoea [Recovered/Resolved]
  - Tachycardia [Recovered/Resolved]
  - Nausea [Recovered/Resolved]
  - Hypotension [Recovered/Resolved]
  - Hot flush [Recovered/Resolved]
  - Vomiting [Recovered/Resolved]
  - Agitation [Recovered/Resolved]
  - Wheezing [Recovered/Resolved]
  - Respiratory distress [Recovered/Resolved]
  - Bronchospasm [Recovered/Resolved]

NARRATIVE: CASE EVENT DATE: 20201029
